FAERS Safety Report 8976426 (Version 2)
Quarter: 2013Q1

REPORT INFORMATION
  Report Type: Report from Study
  Country: US (occurrence: US)
  Receive Date: 20121220
  Receipt Date: 20130124
  Transmission Date: 20140127
  Serious: Yes (Hospitalization)
  Sender: FDA-Public Use
  Company Number: US-ABBOTT-12P-163-1022611-00

PATIENT
  Age: 65 Year
  Sex: Female
  Weight: 90.8 kg

DRUGS (1)
  1. HUMIRA [Suspect]
     Indication: RHEUMATOID ARTHRITIS
     Route: 058
     Dates: start: 201208

REACTIONS (5)
  - Small intestinal obstruction [Recovered/Resolved]
  - Postoperative wound complication [Unknown]
  - Post procedural discharge [Unknown]
  - Abdominal adhesions [Recovered/Resolved]
  - Impaired healing [Unknown]
